FAERS Safety Report 16743472 (Version 1)
Quarter: 2019Q3

REPORT INFORMATION
  Report Type: Spontaneous
  Country: FR (occurrence: FR)
  Receive Date: 20190827
  Receipt Date: 20190827
  Transmission Date: 20191005
  Serious: Yes (Other)
  Sender: FDA-Public Use
  Company Number: FR-ADDMEDICA-201900248

PATIENT
  Age: 37 Year
  Sex: Female
  Weight: 60 kg

DRUGS (1)
  1. SIKLOS [Suspect]
     Active Substance: HYDROXYUREA
     Indication: SICKLE CELL ANAEMIA
     Route: 048
     Dates: start: 20150515, end: 20190207

REACTIONS (2)
  - Abortion spontaneous [Recovered/Resolved]
  - Maternal exposure during pregnancy [Recovered/Resolved]

NARRATIVE: CASE EVENT DATE: 20190228
